FAERS Safety Report 14933084 (Version 1)
Quarter: 2018Q2

REPORT INFORMATION
  Report Type: Spontaneous
  Country: US (occurrence: US)
  Receive Date: 20180524
  Receipt Date: 20180524
  Transmission Date: 20180711
  Serious: No
  Sender: FDA-Public Use
  Company Number: US-PFIZER INC-2018212621

PATIENT
  Sex: Female

DRUGS (1)
  1. PREMARIN [Suspect]
     Active Substance: ESTROGENS, CONJUGATED
     Dosage: UNK [.625 ]
     Dates: start: 201708

REACTIONS (3)
  - Paraesthesia oral [Unknown]
  - Ocular hyperaemia [Unknown]
  - Tongue disorder [Unknown]

NARRATIVE: CASE EVENT DATE: 201805
